FAERS Safety Report 7672556-7 (Version None)
Quarter: 2011Q3

REPORT INFORMATION
  Report Type: 
  Country: None (occurrence: None)
  Receive Date: 20110809
  Receipt Date: 20110727
  Transmission Date: 20111222
  Serious: Yes (Life-Threatening)
  Sender: FDA-Public Use
  Company Number: JP-MYLANLABS-2011S1015776

PATIENT
  Age: 4 Year
  Sex: Male
  Weight: 12 kg

DRUGS (3)
  1. FENTANYL [Suspect]
     Route: 042
  2. DIGOXIN [Concomitant]
     Route: 065
  3. SEVOFLURANE [Suspect]
     Indication: INDUCTION OF ANAESTHESIA
     Route: 055

REACTIONS (3)
  - LARYNGOSPASM [None]
  - CARDIAC ARREST [None]
  - BRADYCARDIA [None]
